FAERS Safety Report 8491267-1 (Version None)
Quarter: 2012Q3

REPORT INFORMATION
  Report Type: 
  Country: None (occurrence: None)
  Receive Date: 20120706
  Receipt Date: 20120702
  Transmission Date: 20120928
  Serious: Yes (Hospitalization, Other)
  Sender: FDA-Public Use
  Company Number: PHHY2011DE46631

PATIENT
  Sex: Female

DRUGS (8)
  1. EXTAVIA [Suspect]
     Dosage: 125 UG, QOD
     Route: 058
     Dates: start: 20120109, end: 20120207
  2. IBUPROFEN [Concomitant]
  3. EXTAVIA [Suspect]
     Dosage: 62.5 UG, QOD
     Route: 058
     Dates: start: 20110601, end: 20110818
  4. EXTAVIA [Suspect]
     Dosage: 125 UG, QOD
     Route: 058
     Dates: start: 20110523, end: 20110601
  5. EXTAVIA [Suspect]
     Dosage: 125 UG, QOD
     Route: 058
     Dates: start: 20110909, end: 20111227
  6. EXTAVIA [Suspect]
     Dosage: 1 ML (250 MCG), QOD
     Route: 058
     Dates: end: 20120629
  7. EXTAVIA [Suspect]
     Indication: MULTIPLE SCLEROSIS
     Dosage: 62.5 UG, QOD
     Route: 058
     Dates: start: 20110517, end: 20110521
  8. COTRIM DS [Concomitant]
     Dosage: TWICE DAILY
     Dates: start: 20120207

REACTIONS (38)
  - ORAL CANDIDIASIS [None]
  - FEELING HOT [None]
  - MIGRAINE [None]
  - INJECTION SITE ERYTHEMA [None]
  - HOT FLUSH [None]
  - URTICARIA [None]
  - WHITE BLOOD CELL COUNT INCREASED [None]
  - NASOPHARYNGITIS [None]
  - CHILLS [None]
  - ABDOMINAL PAIN [None]
  - VOMITING [None]
  - NAUSEA [None]
  - HYPOKINESIA [None]
  - STRESS [None]
  - DEPRESSION [None]
  - OOPHORITIS [None]
  - MULTIPLE SCLEROSIS RELAPSE [None]
  - DYSAESTHESIA [None]
  - DIARRHOEA [None]
  - PAIN [None]
  - PYREXIA [None]
  - PARESIS [None]
  - PARAESTHESIA [None]
  - CHEST DISCOMFORT [None]
  - SLEEP DISORDER [None]
  - INFLUENZA LIKE ILLNESS [None]
  - ABDOMINAL DISCOMFORT [None]
  - PHARYNGITIS [None]
  - FOOD ALLERGY [None]
  - UTERINE CYST [None]
  - DYSPNOEA [None]
  - CYSTITIS [None]
  - HAEMATURIA [None]
  - HYPOAESTHESIA [None]
  - URINARY TRACT INFECTION [None]
  - MOOD SWINGS [None]
  - INFLUENZA [None]
  - HEADACHE [None]
